FAERS Safety Report 5881827-6 (Version None)
Quarter: 2008Q3

REPORT INFORMATION
  Report Type: 
  Country: None (occurrence: None)
  Receive Date: 20080912
  Receipt Date: 20080827
  Transmission Date: 20090109
  Serious: No
  Sender: FDA-Public Use
  Company Number: US-ABBOTT-08P-163-0462777-00

PATIENT
  Sex: Female

DRUGS (3)
  1. HUMIRA [Suspect]
     Indication: DRUG USE FOR UNKNOWN INDICATION
     Dosage: LOADING DOSE
     Dates: start: 20080501, end: 20080501
  2. HUMIRA [Suspect]
  3. HUMIRA [Suspect]
     Route: 058

REACTIONS (2)
  - COUGH [None]
  - SINUS OPERATION [None]
